FAERS Safety Report 7237886-1 (Version None)
Quarter: 2011Q1

REPORT INFORMATION
  Report Type: 
  Country: None (occurrence: None)
  Receive Date: 20110119
  Receipt Date: 20110119
  Transmission Date: 20110831
  Serious: No
  Sender: FDA-Public Use
  Company Number: None

PATIENT
  Sex: Female

DRUGS (1)
  1. PHENTERMINE [Suspect]
     Dates: start: 20090811, end: 20090910

REACTIONS (17)
  - HEPATIC CIRRHOSIS [None]
  - CHRONIC HEPATITIS [None]
  - DISSEMINATED INTRAVASCULAR COAGULATION [None]
  - HEPATIC FAILURE [None]
  - HAEMORRHAGE [None]
  - MULTI-ORGAN FAILURE [None]
  - CANDIDIASIS [None]
  - PERITONITIS BACTERIAL [None]
  - WEIGHT DECREASED [None]
  - HEPATITIS [None]
  - CHOLESTASIS [None]
  - LUNG INFECTION [None]
  - DIALYSIS [None]
  - GASTROINTESTINAL HAEMORRHAGE [None]
  - LIVER INJURY [None]
  - HEPATIC ATROPHY [None]
  - HEPATOTOXICITY [None]
